FAERS Safety Report 7969692-4 (Version None)
Quarter: 2011Q4

REPORT INFORMATION
  Report Type: 
  Country: None (occurrence: None)
  Receive Date: 20111121
  Receipt Date: 20110908
  Transmission Date: 20120403
  Serious: No
  Sender: FDA-Public Use
  Company Number: 1000023683

PATIENT
  Age: 43 Year
  Sex: Female

DRUGS (3)
  1. XANAX [Concomitant]
  2. VIIBRYD [Suspect]
     Indication: DEPRESSION
     Dosage: 10MG (10 MG, 1 IN 1 D), ORAL
     Dates: start: 20110901, end: 20110901
  3. CLONAZEPAM [Concomitant]

REACTIONS (1)
  - DIARRHOEA [None]
